FAERS Safety Report 24717621 (Version 1)
Quarter: 2024Q4

REPORT INFORMATION
  Report Type: Spontaneous
  Country: RU (occurrence: RU)
  Receive Date: 20241210
  Receipt Date: 20241210
  Transmission Date: 20250115
  Serious: Yes (Other)
  Sender: BAYER HEALTHCARE PHARMACEUTICALS INC.
  Company Number: RU-BAYER-2024A172210

PATIENT
  Age: 37 Year
  Sex: Female

DRUGS (1)
  1. DIENOGEST\ESTRADIOL VALERATE [Suspect]
     Active Substance: DIENOGEST\ESTRADIOL VALERATE
     Dosage: UNK
     Route: 048
     Dates: start: 2023

REACTIONS (3)
  - Pregnancy on oral contraceptive [None]
  - Respiratory tract infection viral [None]
  - Drug ineffective [None]

NARRATIVE: CASE EVENT DATE: 20241001
